FAERS Safety Report 5955604-1 (Version None)
Quarter: 2008Q4

REPORT INFORMATION
  Report Type: 
  Country: None (occurrence: None)
  Receive Date: 20081117
  Receipt Date: 20081107
  Transmission Date: 20090506
  Serious: Yes (Hospitalization, Other)
  Sender: FDA-Public Use
  Company Number: FR-PFIZER INC-2008084993

PATIENT
  Sex: Male
  Weight: 105 kg

DRUGS (1)
  1. CHAMPIX [Suspect]
     Indication: SMOKING CESSATION THERAPY
     Route: 048
     Dates: start: 20080905, end: 20080911

REACTIONS (9)
  - ARTERIOSPASM CORONARY [None]
  - CHEST PAIN [None]
  - CYANOSIS [None]
  - FATIGUE [None]
  - MALAISE [None]
  - MUSCULOSKELETAL STIFFNESS [None]
  - PAIN IN EXTREMITY [None]
  - PAIN IN JAW [None]
  - SENSORY LOSS [None]
